FAERS Safety Report 9354197 (Version 2)
Quarter: 2013Q2

REPORT INFORMATION
  Report Type: Spontaneous
  Country: CZ (occurrence: CZ)
  Receive Date: 20130618
  Receipt Date: 20130624
  Transmission Date: 20140414
  Serious: Yes (Other)
  Sender: FDA-Public Use
  Company Number: CZ-GLAXOSMITHKLINE-B0900503A

PATIENT
  Sex: Male

DRUGS (3)
  1. TROBALT [Suspect]
     Indication: EPILEPSY
     Dosage: 600MG PER DAY
     Route: 065
     Dates: start: 20130411
  2. ZEBINIX [Concomitant]
     Indication: EPILEPSY
     Dosage: 800MG PER DAY
  3. KEPPRA [Concomitant]
     Indication: EPILEPSY
     Dosage: 3000MG PER DAY

REACTIONS (3)
  - Convulsion [Recovered/Resolved]
  - Headache [Recovered/Resolved]
  - Dizziness [Recovered/Resolved]
